FAERS Safety Report 6168855-0 (Version None)
Quarter: 2009Q2

REPORT INFORMATION
  Report Type: 
  Country: None (occurrence: None)
  Receive Date: 20090424
  Receipt Date: 20090424
  Transmission Date: 20091009
  Serious: Yes (Hospitalization)
  Sender: FDA-Public Use
  Company Number: None

PATIENT
  Sex: Male
  Weight: 88.2 kg

DRUGS (4)
  1. L-ASPARAGINASE [Suspect]
     Dosage: 66000 IU
     Dates: end: 20070213
  2. VINCRISTINE SULFATE [Suspect]
     Dosage: 8 MG
     Dates: end: 20070217
  3. DAUNORUBICIN HCL [Suspect]
     Dosage: 396 MG
     Dates: end: 20070129
  4. DEXAMETHASONE [Suspect]
     Dosage: 77 MG
     Dates: end: 20070202

REACTIONS (8)
  - DEEP VEIN THROMBOSIS [None]
  - ERYTHEMA [None]
  - LIVER FUNCTION TEST ABNORMAL [None]
  - PANCREATIC ENZYMES INCREASED [None]
  - PYREXIA [None]
  - RASH [None]
  - RETROPERITONEAL HAEMATOMA [None]
  - SYNCOPE [None]
